FAERS Safety Report 7583857-5 (Version None)
Quarter: 2011Q2

REPORT INFORMATION
  Report Type: 
  Country: None (occurrence: None)
  Receive Date: 20110630
  Receipt Date: 20110617
  Transmission Date: 20111010
  Serious: Yes (Other)
  Sender: FDA-Public Use
  Company Number: IE-AMGEN-IRLSP2011030965

PATIENT
  Age: 56 Year
  Sex: Male
  Weight: 98 kg

DRUGS (9)
  1. ZOFRAN [Concomitant]
  2. MOTILIUM                           /00498201/ [Concomitant]
  3. IMODIUM [Concomitant]
  4. FLUOROURACIL [Concomitant]
     Dosage: UNK
     Route: 042
     Dates: start: 20110516
  5. IRINOTECAN HYDROCHLORIDE [Concomitant]
  6. NEULASTA [Suspect]
     Indication: CHEMOTHERAPY
     Dosage: 6 MG, 2 TIMES/WK
     Route: 058
     Dates: start: 20110519
  7. LEUCOVORIN CALCIUM [Concomitant]
     Dosage: UNK
     Route: 042
     Dates: start: 20110516
  8. OXALIPLATIN [Concomitant]
     Dosage: UNK
     Route: 042
     Dates: start: 20110516
  9. DEXAMETHASONE [Concomitant]

REACTIONS (3)
  - BONE PAIN [None]
  - PULMONARY EMBOLISM [None]
  - NEUROPATHY PERIPHERAL [None]
